FAERS Safety Report 5168994-7 (Version None)
Quarter: 2006Q4

REPORT INFORMATION
  Report Type: 
  Country: None (occurrence: None)
  Receive Date: 20061211
  Receipt Date: 20061204
  Transmission Date: 20070319
  Serious: Yes (Hospitalization)
  Sender: FDA-Public Use
  Company Number: FR-AVENTIS-200616172EU

PATIENT
  Age: 57 Year
  Sex: Female
  Weight: 70 kg

DRUGS (4)
  1. FLUDEX                             /00340101/ [Suspect]
     Indication: DRUG USE FOR UNKNOWN INDICATION
     Route: 048
     Dates: start: 20060920, end: 20061010
  2. ZEFFIX [Concomitant]
     Dates: start: 20060415, end: 20061013
  3. HEPSERA [Concomitant]
     Dates: start: 20060415, end: 20061013
  4. DEROXAT [Concomitant]

REACTIONS (3)
  - HYPOKALAEMIA [None]
  - RENAL FAILURE [None]
  - RENAL FAILURE ACUTE [None]
